FAERS Safety Report 23765615 (Version 3)
Quarter: 2024Q2

REPORT INFORMATION
  Report Type: Other
  Country: CA (occurrence: None)
  Receive Date: 20240421
  Receipt Date: 20240426
  Transmission Date: 20240716
  Serious: No
  Sender: FDA-Public Use
  Company Number: CA-ROCHE-3384372

PATIENT
  Sex: Female

DRUGS (1)
  1. OCREVUS [Suspect]
     Active Substance: OCRELIZUMAB
     Indication: Primary progressive multiple sclerosis
     Dosage: MORE DOSAGE INFORMATION IS 300 MG AT DAY 0 AND 14, THEN 600 MG EVERY 6 MONTH
     Route: 042
     Dates: start: 20230228

REACTIONS (11)
  - Drug ineffective [Unknown]
  - Onychomycosis [Recovering/Resolving]
  - Multiple sclerosis [Unknown]
  - Tremor [Recovered/Resolved]
  - Asthenia [Not Recovered/Not Resolved]
  - Asthenopia [Not Recovered/Not Resolved]
  - Diarrhoea [Recovering/Resolving]
  - Immunodeficiency [Unknown]
  - Bradyphrenia [Unknown]
  - Slow speech [Unknown]
  - Mental impairment [Unknown]
